FAERS Safety Report 9251659 (Version 1)
Quarter: 2013Q2

REPORT INFORMATION
  Report Type: Spontaneous
  Country: JP (occurrence: JP)
  Receive Date: 20130424
  Receipt Date: 20130424
  Transmission Date: 20140414
  Serious: Yes (Other)
  Sender: FDA-Public Use
  Company Number: JP-BRISTOL-MYERS SQUIBB COMPANY-18805671

PATIENT
  Sex: 0

DRUGS (2)
  1. PARAPLATIN INJ 150 MG [Suspect]
     Indication: NON-SMALL CELL LUNG CANCER
     Route: 041
  2. TS-1 [Concomitant]

REACTIONS (1)
  - Small intestinal ulcer haemorrhage [Unknown]
